FAERS Safety Report 9549927 (Version 2)
Quarter: 2013Q4

REPORT INFORMATION
  Report Type: Report from Study
  Country: CA (occurrence: CA)
  Receive Date: 20130924
  Receipt Date: 20131018
  Transmission Date: 20140711
  Serious: Yes (Other)
  Sender: FDA-Public Use
  Company Number: CA-ABBVIE-13P-028-1150838-00

PATIENT
  Sex: Male
  Weight: 59.02 kg

DRUGS (1)
  1. HUMIRA [Suspect]
     Indication: CROHN^S DISEASE
     Route: 058
     Dates: start: 20101104, end: 20130603

REACTIONS (16)
  - Ileal fistula [Recovered/Resolved]
  - Crohn^s disease [Not Recovered/Not Resolved]
  - Hypertrophy [Recovered/Resolved]
  - Scar [Recovered/Resolved]
  - Gastrointestinal oedema [Unknown]
  - Small intestinal obstruction [Unknown]
  - Gastrointestinal stoma complication [Unknown]
  - Electrolyte imbalance [Unknown]
  - Procedural nausea [Unknown]
  - Immunosuppression [Unknown]
  - Malnutrition [Unknown]
  - Gastrointestinal disorder [Unknown]
  - Mass [Unknown]
  - Gastrointestinal disorder [Unknown]
  - Metaplasia [Unknown]
  - Gastrointestinal stoma complication [Unknown]
